FAERS Safety Report 5181059-3 (Version None)
Quarter: 2006Q4

REPORT INFORMATION
  Report Type: 
  Country: None (occurrence: None)
  Receive Date: 20061215
  Receipt Date: 20061215
  Transmission Date: 20070319
  Serious: No
  Sender: FDA-Public Use
  Company Number: None

PATIENT
  Sex: Female
  Weight: 74.1 kg

DRUGS (1)
  1. TEMOZOLOMIDE [Suspect]
     Dosage: 3420 MG

REACTIONS (1)
  - PLATELET COUNT DECREASED [None]
